FAERS Safety Report 6866615-6 (Version None)
Quarter: 2010Q2

REPORT INFORMATION
  Report Type: 
  Country: None (occurrence: None)
  Receive Date: 20100601
  Receipt Date: 20091022
  Transmission Date: 20101027
  Serious: Yes (Other)
  Sender: FDA-Public Use
  Company Number: US200910001120

PATIENT
  Age: 48 Year
  Sex: Female

DRUGS (7)
  1. BYETTA [Suspect]
     Indication: TYPE 2 DIABETES MELLITUS
     Dosage: 5 UG, 2/D ; 10 UG, 2/D
     Dates: start: 20050801, end: 20060101
  2. BYETTA [Suspect]
     Indication: TYPE 2 DIABETES MELLITUS
     Dosage: 5 UG, 2/D ; 10 UG, 2/D
     Dates: start: 20060101, end: 20070726
  3. EXENATIDE 10MCG PEN, DISPOSABLE DEVICE (EXENATIDE PEN (10MCG)) [Concomitant]
  4. CRESTOR [Concomitant]
  5. METFORMIN HCL [Concomitant]
  6. ZOLOFT [Concomitant]
  7. ALTACE [Concomitant]

REACTIONS (1)
  - HYPERSENSITIVITY [None]
